FAERS Safety Report 4582783-3 (Version None)
Quarter: 2005Q1

REPORT INFORMATION
  Report Type: 
  Country: None (occurrence: None)
  Receive Date: 20050215
  Receipt Date: 20050117
  Transmission Date: 20050727
  Serious: Yes (Other)
  Sender: FDA-Public Use
  Company Number: NZ-GLAXOSMITHKLINE-B0364699A

PATIENT
  Age: 31 Year
  Sex: Male

DRUGS (1)
  1. FLIXONASE 24 HOUR [Suspect]
     Indication: SEASONAL ALLERGY
     Route: 045
     Dates: start: 20041101, end: 20041201

REACTIONS (3)
  - ANXIETY [None]
  - DYSPHONIA [None]
  - VOCAL CORD PARALYSIS [None]
